FAERS Safety Report 13563132 (Version 1)
Quarter: 2017Q2

REPORT INFORMATION
  Report Type: Spontaneous
  Country: US (occurrence: US)
  Receive Date: 20170519
  Receipt Date: 20170519
  Transmission Date: 20170830
  Serious: No
  Sender: FDA-Public Use
  Company Number: US-SHIRE-US201710711

PATIENT
  Age: 57 Year
  Sex: Male
  Weight: 70.3 kg

DRUGS (2)
  1. XIIDRA [Suspect]
     Active Substance: LIFITEGRAST
     Indication: DRY EYE
     Dosage: 1 GTT, BOTH EYES, 2X/DAY:BID
     Route: 047
     Dates: start: 20170506
  2. PREDNISONE. [Concomitant]
     Active Substance: PREDNISONE
     Indication: CORNEAL TRANSPLANT
     Dosage: 1 GTT, LEFT EYE, 1X/DAY:QD
     Route: 047
     Dates: start: 2008

REACTIONS (1)
  - Instillation site pain [Not Recovered/Not Resolved]

NARRATIVE: CASE EVENT DATE: 20170506
